FAERS Safety Report 5647678-2 (Version None)
Quarter: 2008Q1

REPORT INFORMATION
  Report Type: 
  Country: None (occurrence: None)
  Receive Date: 20080131
  Receipt Date: 20071218
  Transmission Date: 20080703
  Serious: No
  Sender: FDA-Public Use
  Company Number: 163-21880-07121011

PATIENT
  Age: 83 Year
  Sex: Male

DRUGS (2)
  1. REVLIMID [Suspect]
     Indication: MULTIPLE MYELOMA
     Dosage: 5 MG, DAILY X 21 DAYS, ORAL ; 10 MG, DAILY X 21 DAYS, ORAL
     Route: 048
     Dates: start: 20070921, end: 20071205
  2. REVLIMID [Suspect]
     Indication: MULTIPLE MYELOMA
     Dosage: 5 MG, DAILY X 21 DAYS, ORAL ; 10 MG, DAILY X 21 DAYS, ORAL
     Route: 048
     Dates: start: 20071219

REACTIONS (1)
  - JOINT SWELLING [None]
